FAERS Safety Report 4778765-9 (Version None)
Quarter: 2005Q3

REPORT INFORMATION
  Report Type: 
  Country: None (occurrence: None)
  Receive Date: 20050926
  Receipt Date: 20040818
  Transmission Date: 20060218
  Serious: Yes (Disabling)
  Sender: FDA-Public Use
  Company Number: 2004UW17571

PATIENT
  Age: 53 Year
  Sex: Male
  Weight: 101.7 kg

DRUGS (5)
  1. CRESTOR [Suspect]
     Indication: HYPERCHOLESTEROLAEMIA
     Route: 048
     Dates: end: 20040620
  2. ASPIRIN [Concomitant]
  3. GNC MEGA MAN VITAMIN [Concomitant]
     Dosage: 2 TABLETS A DAY
  4. ZINC [Concomitant]
  5. NIASPAN [Concomitant]
     Dosage: INSTRUCTIONS GIVEN TO TITRATE TO 1500MG
     Route: 048
     Dates: start: 20040817

REACTIONS (5)
  - FATIGUE [None]
  - NAUSEA [None]
  - NIGHT SWEATS [None]
  - RHABDOMYOLYSIS [None]
  - VOMITING [None]
